FAERS Safety Report 23542642 (Version 1)
Quarter: 2024Q1

REPORT INFORMATION
  Report Type: Spontaneous
  Country: NL (occurrence: NL)
  Receive Date: 20240220
  Receipt Date: 20240220
  Transmission Date: 20240409
  Serious: No
  Sender: FDA-Public Use
  Company Number: NL-ALKEM LABORATORIES LIMITED-NL-ALKEM-2023-14497

PATIENT
  Age: 21 Year
  Sex: Male

DRUGS (1)
  1. TRIAMCINOLONE ACETONIDE [Suspect]
     Active Substance: TRIAMCINOLONE ACETONIDE
     Indication: Dermatitis papillaris capillitii
     Dosage: UNK, (ELECTRONICALLY CONTROLLED PNEUMATIC INJECTOR, THREE TREATMENTS)
     Route: 026

REACTIONS (1)
  - Skin atrophy [Unknown]
